FAERS Safety Report 24030873 (Version 2)
Quarter: 2024Q3

REPORT INFORMATION
  Report Type: Spontaneous
  Country: US (occurrence: US)
  Receive Date: 20240628
  Receipt Date: 20240809
  Transmission Date: 20241017
  Serious: No
  Sender: PFIZER
  Company Number: US-PFIZER INC-PV202400085206

PATIENT
  Age: 17 Year
  Sex: Female

DRUGS (2)
  1. LITFULO [Suspect]
     Active Substance: RITLECITINIB TOSYLATE
     Dosage: UNKNOWN DOSE, 1X/DAY( IN THE MORNINGS, SHE NOW TOOK IT AT NIGHT
     Route: 048
  2. MINOXIDIL [Suspect]
     Active Substance: MINOXIDIL
     Dosage: UNK
     Route: 048

REACTIONS (1)
  - Fatigue [Recovered/Resolved]
